FAERS Safety Report 10932967 (Version 1)
Quarter: 2015Q1

REPORT INFORMATION
  Report Type: Spontaneous
  Country: US (occurrence: US)
  Receive Date: 20150320
  Receipt Date: 20150320
  Transmission Date: 20150721
  Serious: Yes (Other)
  Sender: FDA-Public Use
  Company Number: US-CUBIST PHARMACEUTICALS, INC.-2015CBST000364

PATIENT

DRUGS (3)
  1. CUBICIN [Suspect]
     Active Substance: DAPTOMYCIN
     Indication: OFF LABEL USE
  2. CUBICIN [Suspect]
     Active Substance: DAPTOMYCIN
     Indication: ENDOCARDITIS STAPHYLOCOCCAL
     Dosage: 6 MG/KG, UNK
     Route: 065
  3. VANCOMYCIN [Concomitant]
     Active Substance: VANCOMYCIN
     Indication: ENDOCARDITIS STAPHYLOCOCCAL
     Dosage: UNK UNK, UNK
     Route: 065

REACTIONS (5)
  - Hemiparesis [Unknown]
  - Antimicrobial susceptibility test resistant [Unknown]
  - Aphasia [Unknown]
  - Embolic stroke [Unknown]
  - Off label use [Unknown]
